FAERS Safety Report 7525518-4 (Version None)
Quarter: 2011Q2

REPORT INFORMATION
  Report Type: 
  Country: None (occurrence: None)
  Receive Date: 20110606
  Receipt Date: 20110525
  Transmission Date: 20111010
  Serious: No
  Sender: FDA-Public Use
  Company Number: JP-PFIZER INC-2011090034

PATIENT
  Age: 33 Year
  Sex: Male

DRUGS (6)
  1. ZITHROMAX [Suspect]
     Indication: PHARYNGITIS
     Dosage: 500 MG, 1X/DAY
     Route: 048
     Dates: start: 20110414, end: 20110416
  2. REBAMIPIDE [Concomitant]
     Indication: PHARYNGITIS
     Dosage: 100 MG, 3X/DAY
     Route: 048
     Dates: start: 20110414, end: 20110420
  3. SALICYLAMIDE [Concomitant]
     Indication: PHARYNGITIS
     Dosage: 1 DF, 3X/DAY
     Route: 048
     Dates: start: 20110414, end: 20110417
  4. PABRON [Concomitant]
     Route: 048
  5. SHOUSAIKOTOUKAKIKYOUSEKKOU [Concomitant]
     Indication: PHARYNGITIS
     Dosage: 2.5 G, 3X/DAY
     Route: 048
     Dates: start: 20110416, end: 20110419
  6. AMBROXOL HYDROCHLORIDE [Concomitant]
     Indication: PHARYNGITIS
     Dosage: 15 MG, 3X/DAY
     Route: 048
     Dates: start: 20110414, end: 20110420

REACTIONS (2)
  - MYALGIA [None]
  - BLOOD CREATINE PHOSPHOKINASE INCREASED [None]
